FAERS Safety Report 4616204-9 (Version None)
Quarter: 2005Q1

REPORT INFORMATION
  Report Type: 
  Country: None (occurrence: None)
  Receive Date: 20050321
  Receipt Date: 20050307
  Transmission Date: 20050727
  Serious: Yes (Other)
  Sender: FDA-Public Use
  Company Number: 2005041549

PATIENT
  Age: 16 Year
  Sex: Male
  Weight: 83.9154 kg

DRUGS (4)
  1. ZOLOFT [Suspect]
     Indication: ILL-DEFINED DISORDER
     Dosage: UNKNOWN
     Route: 065
     Dates: start: 20041201
  2. DORZOLAMIDE HYDROCHLORIDE (DORZOLAMIDE HYDROCHLORIDE) [Concomitant]
  3. APRACLONIDINE (APRACLONIDINE) [Concomitant]
  4. ACETAZOLAMIDE [Concomitant]

REACTIONS (2)
  - DRUG INEFFECTIVE [None]
  - INTRAOCULAR PRESSURE INCREASED [None]
